FAERS Safety Report 9655841 (Version 3)
Quarter: 2013Q4

REPORT INFORMATION
  Report Type: Spontaneous
  Country: US (occurrence: US)
  Receive Date: 20131030
  Receipt Date: 20131209
  Transmission Date: 20140711
  Serious: No
  Sender: FDA-Public Use
  Company Number: US-009507513-1310USA012859

PATIENT
  Sex: Male

DRUGS (2)
  1. JANUMET [Suspect]
     Dosage: 5/500 UNITS UNKNOWN, TWICE DAILY
     Route: 048
     Dates: end: 2013
  2. GLIPIZIDE [Concomitant]

REACTIONS (2)
  - Blood glucose abnormal [Unknown]
  - Drug ineffective [Unknown]
